FAERS Safety Report 24990826 (Version 2)
Quarter: 2025Q3

REPORT INFORMATION
  Report Type: Spontaneous
  Country: CR (occurrence: CR)
  Receive Date: 20250220
  Receipt Date: 20250722
  Transmission Date: 20251020
  Serious: Yes (Other)
  Sender: PFIZER
  Company Number: CR-PFIZER INC-PV202500020509

PATIENT
  Age: 76 Year
  Sex: Female

DRUGS (3)
  1. PRISTIQ EXTENDED-RELEASE [Suspect]
     Active Substance: DESVENLAFAXINE SUCCINATE
     Indication: Depression
     Dosage: 100 MG, 1X/DAY
     Dates: start: 2017
  2. EXELON [Concomitant]
     Active Substance: RIVASTIGMINE TARTRATE
  3. CITICOLINE [Concomitant]
     Active Substance: CITICOLINE

REACTIONS (2)
  - Fall [Unknown]
  - Cognitive disorder [Unknown]
